FAERS Safety Report 9834838 (Version 1)
Quarter: 2014Q1

REPORT INFORMATION
  Report Type: Spontaneous
  Country: US (occurrence: US)
  Receive Date: 20140122
  Receipt Date: 20140122
  Transmission Date: 20141002
  Serious: No
  Sender: FDA-Public Use
  Company Number: US-BAUSCH-BL-2013-002711

PATIENT
  Age: 74 Year
  Sex: Female
  Weight: 72.64 kg

DRUGS (3)
  1. ALAWAY (KETOTIFEN FUMARATE OPHTHALMIC SOLUTION) [Suspect]
     Indication: EYE PRURITUS
     Dosage: 2 DROPS IN EACH EYE; TWICE DAILY; OPHTHALMIC
     Route: 047
     Dates: start: 20130424, end: 20130425
  2. HYDROCHLOROTHIAZIDE [Concomitant]
     Indication: HYPERTENSION
  3. OMEPRAZOLE [Concomitant]
     Indication: GASTROOESOPHAGEAL REFLUX DISEASE

REACTIONS (1)
  - Instillation site pain [Recovered/Resolved]
